FAERS Safety Report 14227931 (Version 2)
Quarter: 2018Q1

REPORT INFORMATION
  Report Type: Spontaneous
  Country: FR (occurrence: FR)
  Receive Date: 20171127
  Receipt Date: 20180206
  Transmission Date: 20180508
  Serious: Yes (Death, Life-Threatening, Hospitalization, Other)
  Sender: FDA-Public Use
  Company Number: PHHY2017FR174881

PATIENT
  Age: 71 Year
  Sex: Female

DRUGS (2)
  1. METHOTREXATE. [Suspect]
     Active Substance: METHOTREXATE
     Indication: RHEUMATOID ARTHRITIS
     Dosage: 12.5 MG, QW
     Route: 065
  2. PREDNISONE. [Suspect]
     Active Substance: PREDNISONE
     Indication: RHEUMATOID ARTHRITIS
     Dosage: 6 MG, QD
     Route: 065

REACTIONS (9)
  - Acute kidney injury [Fatal]
  - Weight decreased [Fatal]
  - Abdominal pain [Fatal]
  - Isosporiasis [Fatal]
  - Diarrhoea [Fatal]
  - Pyrexia [Fatal]
  - Cardiogenic shock [Fatal]
  - Hypotension [Fatal]
  - Dehydration [Fatal]
